FAERS Safety Report 20246887 (Version 3)
Quarter: 2023Q4

REPORT INFORMATION
  Report Type: Spontaneous
  Country: US (occurrence: US)
  Receive Date: 20211229
  Receipt Date: 20231212
  Transmission Date: 20240110
  Serious: No
  Sender: FDA-Public Use
  Company Number: US-PFIZER INC-202101798714

PATIENT
  Age: 42 Year
  Sex: Female

DRUGS (19)
  1. IBRANCE [Suspect]
     Active Substance: PALBOCICLIB
     Indication: Breast cancer female
     Dosage: 125 MG
     Dates: start: 20211129
  2. IBRANCE [Suspect]
     Active Substance: PALBOCICLIB
     Dosage: 125 MG
     Dates: start: 20211201
  3. IBRANCE [Suspect]
     Active Substance: PALBOCICLIB
     Dosage: 125 MG
     Dates: start: 20211212
  4. IBRANCE [Suspect]
     Active Substance: PALBOCICLIB
     Dosage: 125 MG
     Dates: start: 20220105
  5. IBRANCE [Suspect]
     Active Substance: PALBOCICLIB
     Dosage: 1TAKE 1 TABLET BY MOUTH ONCE DAILY FOR 21 DAYS, FOLLOWED 7 DAYS OFF
     Route: 048
     Dates: start: 20231207
  6. CALCIUM CITRATE\VITAMIN D [Concomitant]
     Active Substance: CALCIUM CITRATE\VITAMIN D
  7. DIPHENHYDRAMINE [Concomitant]
     Active Substance: DIPHENHYDRAMINE
  8. EPINEPHRINE [Concomitant]
     Active Substance: EPINEPHRINE
     Dosage: POW
  9. EXEMESTANE [Concomitant]
     Active Substance: EXEMESTANE
  10. FISH OIL [COD-LIVER OIL] [Concomitant]
  11. METOCLOPRAMIDE [Concomitant]
     Active Substance: METOCLOPRAMIDE
  12. NORETHINDRONE ACETATE [Concomitant]
     Active Substance: NORETHINDRONE ACETATE
     Dosage: POW
  13. ONDANSETRON [Concomitant]
     Active Substance: ONDANSETRON
  14. PARAGARD T 380A [Concomitant]
     Active Substance: COPPER
     Dosage: IUD T380A
  15. PROCHLORPERAZINE MALEATE [Concomitant]
     Active Substance: PROCHLORPERAZINE MALEATE
  16. SOLU-CORTEF [Concomitant]
     Active Substance: HYDROCORTISONE SODIUM SUCCINATE
  17. TRAMADOL HCL [Concomitant]
     Active Substance: TRAMADOL HYDROCHLORIDE
  18. GOSERELIN [Concomitant]
     Active Substance: GOSERELIN
  19. ZOLEDRONIC [Concomitant]
     Active Substance: ZOLEDRONIC ACID
     Dosage: 5/100ML

REACTIONS (4)
  - Fatigue [Not Recovered/Not Resolved]
  - Insomnia [Unknown]
  - Dry skin [Not Recovered/Not Resolved]
  - Alopecia [Not Recovered/Not Resolved]

NARRATIVE: CASE EVENT DATE: 20211201
